FAERS Safety Report 18342705 (Version 1)
Quarter: 2020Q4

REPORT INFORMATION
  Report Type: Spontaneous
  Country: DE (occurrence: DE)
  Receive Date: 20201005
  Receipt Date: 20201005
  Transmission Date: 20210113
  Serious: Yes (Hospitalization, Other)
  Sender: FDA-Public Use
  Company Number: DE-LUPIN (EUROPE) LIMITED-2012-00196

PATIENT
  Age: 44 Year
  Sex: Female
  Weight: 60 kg

DRUGS (3)
  1. LAMOTRIGINE. [Suspect]
     Active Substance: LAMOTRIGINE
     Indication: MAJOR DEPRESSION
     Dosage: 20 GRAM, OVERDOSE
     Route: 048
  2. DIAZEPAM. [Suspect]
     Active Substance: DIAZEPAM
     Indication: MAJOR DEPRESSION
     Dosage: 200 MILLIGRAM, OVERDOSE
     Route: 048
  3. VENLAFAXINE [Suspect]
     Active Substance: VENLAFAXINE HYDROCHLORIDE
     Indication: MAJOR DEPRESSION
     Dosage: 4.5 GRAM, OVERDOSE
     Route: 048

REACTIONS (19)
  - Intentional overdose [Recovered/Resolved]
  - Anticonvulsant drug level above therapeutic [Unknown]
  - Body temperature increased [Recovered/Resolved]
  - Myoclonus [Recovered/Resolved]
  - Blood creatine phosphokinase increased [Recovered/Resolved]
  - Hyperreflexia [Recovered/Resolved]
  - Toxicity to various agents [Unknown]
  - Gastric lavage [Recovered/Resolved]
  - Seizure [Recovered/Resolved]
  - Haemodialysis [Recovered/Resolved]
  - Unresponsive to stimuli [Recovered/Resolved]
  - Muscle rigidity [Recovered/Resolved]
  - Coma [Recovered/Resolved]
  - Nuchal rigidity [Recovered/Resolved]
  - Generalised tonic-clonic seizure [Recovered/Resolved]
  - Coma scale abnormal [Recovered/Resolved]
  - Serotonin syndrome [Recovered/Resolved]
  - Suicide attempt [Recovered/Resolved]
  - Loss of consciousness [Recovered/Resolved]
